FAERS Safety Report 6486370-1 (Version None)
Quarter: 2009Q4

REPORT INFORMATION
  Report Type: 
  Country: None (occurrence: None)
  Receive Date: 20091210
  Receipt Date: 20091130
  Transmission Date: 20100525
  Serious: Yes (Hospitalization)
  Sender: FDA-Public Use
  Company Number: US-BIOGENIDEC-2008BI016845

PATIENT
  Sex: Female

DRUGS (2)
  1. TYSABRI [Suspect]
     Indication: MULTIPLE SCLEROSIS
     Route: 042
     Dates: start: 20080125
  2. AVONEX [Concomitant]
     Indication: MULTIPLE SCLEROSIS
     Route: 030

REACTIONS (13)
  - APPENDICEAL ABSCESS [None]
  - APPENDICITIS [None]
  - APPENDIX DISORDER [None]
  - CERVICITIS [None]
  - ENDOMETRIAL DISORDER [None]
  - ENDOMETRIAL HYPERPLASIA [None]
  - LEIOMYOMA [None]
  - OVARIAN CYST [None]
  - OVARIAN DISORDER [None]
  - PYREXIA [None]
  - SALPINGITIS [None]
  - TUBO-OVARIAN ABSCESS [None]
  - WHITE BLOOD CELL COUNT INCREASED [None]
